FAERS Safety Report 4978223-2 (Version None)
Quarter: 2006Q2

REPORT INFORMATION
  Report Type: 
  Country: None (occurrence: None)
  Receive Date: 20060414
  Receipt Date: 20060406
  Transmission Date: 20061013
  Serious: Yes (Other)
  Sender: FDA-Public Use
  Company Number: 2006-03-1317

PATIENT
  Age: 11 Year
  Sex: Male
  Weight: 39.9165 kg

DRUGS (1)
  1. ASMANEX TWISTHALER [Suspect]
     Indication: ASTHMA
     Dosage: 1 PUFF QD INHALATION
     Route: 055
     Dates: start: 20050101

REACTIONS (1)
  - COELIAC DISEASE [None]
